FAERS Safety Report 24294107 (Version 2)
Quarter: 2025Q3

REPORT INFORMATION
  Report Type: Spontaneous
  Country: US (occurrence: US)
  Receive Date: 20240906
  Receipt Date: 20250905
  Transmission Date: 20251021
  Serious: No
  Sender: DOMPE FARMACEUTICI
  Company Number: US-FARMAPROD-202308-202404-1476

PATIENT
  Age: 82 Year
  Sex: Female

DRUGS (34)
  1. OXERVATE [Suspect]
     Active Substance: CENEGERMIN-BKBJ
     Indication: Neurotrophic keratopathy
     Route: 047
     Dates: start: 20240408, end: 20240603
  2. OXERVATE [Suspect]
     Active Substance: CENEGERMIN-BKBJ
  3. OXERVATE [Suspect]
     Active Substance: CENEGERMIN-BKBJ
     Route: 047
     Dates: start: 20250121
  4. OXERVATE [Suspect]
     Active Substance: CENEGERMIN-BKBJ
  5. PREDNISOLONE [Concomitant]
     Active Substance: PREDNISOLONE
  6. LASIX [Concomitant]
     Active Substance: FUROSEMIDE
  7. NIACIN [Concomitant]
     Active Substance: NIACIN
  8. SYSTANE GEL [Concomitant]
  9. ARTIFICIAL TEARS [Concomitant]
  10. RITUXAN [Concomitant]
     Active Substance: RITUXIMAB
  11. PROLIA [Concomitant]
     Active Substance: DENOSUMAB
  12. XIIDRA [Concomitant]
     Active Substance: LIFITEGRAST
  13. SOTALOL [Concomitant]
     Active Substance: SOTALOL
  14. ROSUVASTATIN CALCIUM [Concomitant]
     Active Substance: ROSUVASTATIN CALCIUM
  15. LEVOTHYROXINE SODIUM [Concomitant]
     Active Substance: LEVOTHYROXINE SODIUM
  16. LEVETIRACETAM [Concomitant]
     Active Substance: LEVETIRACETAM
  17. FLONASE ALLERGY RELIEF [Concomitant]
     Active Substance: FLUTICASONE PROPIONATE
  18. ZETIA [Concomitant]
     Active Substance: EZETIMIBE
  19. DULOXETINE HYDROCHLORIDE [Concomitant]
     Active Substance: DULOXETINE HYDROCHLORIDE
  20. CLOPIDOGREL [Concomitant]
     Active Substance: CLOPIDOGREL BISULFATE
  21. NITROGLYCERIN [Concomitant]
     Active Substance: NITROGLYCERIN
  22. CALCIUM CARBONATE [Concomitant]
     Active Substance: CALCIUM CARBONATE
  23. PANTOPRAZOLE SODIUM [Concomitant]
     Active Substance: PANTOPRAZOLE SODIUM
  24. ALPRAZOLAM [Concomitant]
     Active Substance: ALPRAZOLAM
  25. ASPIRIN [Concomitant]
     Active Substance: ASPIRIN
  26. ZINC [Concomitant]
     Active Substance: ZINC
  27. FISH OIL [Concomitant]
     Active Substance: FISH OIL
  28. VITAMIN D3 [Concomitant]
     Active Substance: CHOLECALCIFEROL
  29. COENZYME Q-10 [Concomitant]
  30. VITAMIN B COMPLEX [Concomitant]
     Active Substance: CYANOCOBALAMIN\DEXPANTHENOL\NIACINAMIDE\PYRIDOXINE HYDROCHLORIDE\RIBOFLAVIN 5^-PHOSPHATE SODIUM\THIA
  31. TYLENOL ARTHRITIS PAIN [Concomitant]
     Active Substance: ACETAMINOPHEN
  32. PRAMIPEXOLE DIHYDROCHLORIDE [Concomitant]
     Active Substance: PRAMIPEXOLE DIHYDROCHLORIDE
  33. IPRATROPIUM BROMIDE [Concomitant]
     Active Substance: IPRATROPIUM BROMIDE
  34. MEDROL [Concomitant]
     Active Substance: METHYLPREDNISOLONE

REACTIONS (8)
  - Eye pain [Not Recovered/Not Resolved]
  - Eyelid pain [Not Recovered/Not Resolved]
  - Product dose omission issue [Unknown]
  - Periorbital pain [Not Recovered/Not Resolved]
  - Ocular discomfort [Unknown]
  - Eye swelling [Unknown]
  - Rhinorrhoea [Unknown]
  - Oral pain [Unknown]

NARRATIVE: CASE EVENT DATE: 20240416
